FAERS Safety Report 8595771 (Version 2)
Quarter: 2013Q3

REPORT INFORMATION
  Report Type: Spontaneous
  Country: US (occurrence: US)
  Receive Date: 20120605
  Receipt Date: 20130911
  Transmission Date: 20140515
  Serious: Yes (Other)
  Sender: FDA-Public Use
  Company Number: US-ASTRAZENECA-2012SE35462

PATIENT
  Age: 48 Year
  Sex: Female
  Weight: 90.7 kg

DRUGS (4)
  1. NEXIUM [Suspect]
     Indication: GASTROOESOPHAGEAL REFLUX DISEASE
     Route: 048
  2. PRILOSEC [Suspect]
     Route: 048
  3. CUMADIN [Concomitant]
  4. CELEXA [Concomitant]

REACTIONS (8)
  - Cerebrovascular accident [Unknown]
  - Uterine disorder [Unknown]
  - Osteoporosis [Unknown]
  - Multiple fractures [Unknown]
  - Tibia fracture [Unknown]
  - Fibula fracture [Unknown]
  - Fall [Unknown]
  - Upper limb fracture [Unknown]
